FAERS Safety Report 4349845-7 (Version None)
Quarter: 2004Q2

REPORT INFORMATION
  Report Type: 
  Country: None (occurrence: None)
  Receive Date: 20040426
  Receipt Date: 20040421
  Transmission Date: 20050107
  Serious: Yes (Other)
  Sender: FDA-Public Use
  Company Number: 2004-04-0035

PATIENT
  Age: 72 Year
  Sex: Male
  Weight: 60 kg

DRUGS (3)
  1. INTRONA (INTERFERON ALFA-2B RCOMBINANT) INJECTABLE [Suspect]
     Indication: NON-HODGKIN'S LYMPHOMA
     Dosage: 3 MIU TIW UNKNOWN
     Dates: start: 20030601, end: 20040201
  2. ASASANTIN (DIPYRIDAMOLE/ASPIRIN) [Concomitant]
  3. TAMSULOSIN HYDROCHLORIDE [Concomitant]

REACTIONS (2)
  - INJECTION SITE NECROSIS [None]
  - SKIN LESION [None]
